FAERS Safety Report 8990838 (Version 2)
Quarter: 2013Q1

REPORT INFORMATION
  Report Type: Spontaneous
  Country: AR (occurrence: AR)
  Receive Date: 20121231
  Receipt Date: 20130213
  Transmission Date: 20140127
  Serious: Yes (Other)
  Sender: FDA-Public Use
  Company Number: PHHY2012AR120748

PATIENT
  Age: 62 Year
  Sex: Male

DRUGS (2)
  1. DIOVAN D [Suspect]
     Indication: HYPERTENSION
     Dosage: 1 DF (160/25 MG), DAILY
     Route: 048
  2. DIOVAN D [Suspect]
     Dosage: 1 DF (160/25 MG), DAILY
     Route: 048

REACTIONS (5)
  - Diabetes mellitus [Recovering/Resolving]
  - Malaise [Recovering/Resolving]
  - Pollakiuria [Recovering/Resolving]
  - Somnolence [Recovering/Resolving]
  - Blood pressure decreased [Recovering/Resolving]
